FAERS Safety Report 6696402-3 (Version None)
Quarter: 2010Q2

REPORT INFORMATION
  Report Type: 
  Country: None (occurrence: None)
  Receive Date: 20100426
  Receipt Date: 20100412
  Transmission Date: 20101027
  Serious: Yes (Other)
  Sender: FDA-Public Use
  Company Number: KR-ROCHE-696957

PATIENT
  Age: 53 Year
  Sex: Male

DRUGS (1)
  1. BEVACIZUMAB [Suspect]
     Dosage: 1.25 MG PER 0.05 ML
     Route: 031

REACTIONS (7)
  - ATROPHY OF GLOBE [None]
  - BLINDNESS [None]
  - ENDOPHTHALMITIS [None]
  - OFF LABEL USE [None]
  - SERRATIA INFECTION [None]
  - TRANSMISSION OF AN INFECTIOUS AGENT VIA A MEDICINAL PRODUCT [None]
  - WRONG TECHNIQUE IN DRUG USAGE PROCESS [None]
